FAERS Safety Report 7698731-3 (Version None)
Quarter: 2011Q3

REPORT INFORMATION
  Report Type: 
  Country: None (occurrence: None)
  Receive Date: 20110819
  Receipt Date: 20110815
  Transmission Date: 20111222
  Serious: Yes (Life-Threatening, Hospitalization)
  Sender: FDA-Public Use
  Company Number: GB-PFIZER INC-2011149888

PATIENT
  Age: 50 Year
  Sex: Male
  Weight: 77.2 kg

DRUGS (6)
  1. HUMALOG [Concomitant]
     Indication: DIABETES MELLITUS
     Dosage: 2X/DAY
     Route: 058
     Dates: start: 20050623
  2. SUNITINIB MALATE [Suspect]
     Indication: SOMATOSTATINOMA
     Dosage: 37.5 MG, 1X/DAY
     Route: 048
     Dates: start: 20080912, end: 20110521
  3. CREON [Concomitant]
     Indication: MALABSORPTION
     Dosage: 40000 IU, 3 - 4 TIMES A DAY
     Route: 048
     Dates: start: 19970801
  4. URSODEOXYCHOLIC ACID [Concomitant]
     Indication: CHOLANGITIS
     Dosage: UNK
     Route: 048
     Dates: start: 20090306
  5. OMEPRAZOLE [Concomitant]
     Indication: DYSPEPSIA
     Dosage: UNK
     Route: 048
     Dates: start: 20090904
  6. DOMPERIDONE [Concomitant]
     Indication: NAUSEA
     Route: 048

REACTIONS (2)
  - BILIARY SEPSIS [None]
  - GASTROINTESTINAL HAEMORRHAGE [None]
